FAERS Safety Report 8187005-2 (Version None)
Quarter: 2012Q1

REPORT INFORMATION
  Report Type: 
  Country: None (occurrence: None)
  Receive Date: 20120306
  Receipt Date: 20120301
  Transmission Date: 20120608
  Serious: Yes (Death, Hospitalization, Disabling, Other)
  Sender: FDA-Public Use
  Company Number: MX-SANOFI-AVENTIS-2012SA014378

PATIENT
  Age: 80 Year
  Sex: Male

DRUGS (4)
  1. PLAVIX [Suspect]
     Indication: THROMBOSIS PROPHYLAXIS
     Route: 048
     Dates: start: 20080101, end: 20120220
  2. ALL OTHER THERAPEUTIC PRODUCTS [Concomitant]
     Dates: end: 20120220
  3. PLAVIX [Suspect]
     Route: 048
     Dates: start: 20080101, end: 20120220
  4. INSULIN HUMAN REGULAR [Concomitant]
     Indication: TYPE 2 DIABETES MELLITUS
     Route: 058
     Dates: start: 20090101, end: 20120220

REACTIONS (3)
  - RENAL FAILURE ACUTE [None]
  - DIABETIC FOOT [None]
  - EXTREMITY NECROSIS [None]
